FAERS Safety Report 8762232 (Version 1)
Quarter: 2012Q4

REPORT INFORMATION
  Report Type: 
  Country: CN (occurrence: CN)
  Receive Date: 20120830
  Receipt Date: 20120830
  Transmission Date: 20130627
  Serious: Yes (Other)
  Sender: FDA-Public Use
  Company Number: CN-ROCHE-1103087

PATIENT
  Age: 56 Year
  Sex: Male
  Weight: 67 kg

DRUGS (2)
  1. ROCEPHIN [Suspect]
     Indication: INFECTION
     Route: 037
     Dates: start: 20090211, end: 20090213
  2. SODIUM CHLORIDE 0.9% FLUSH [Concomitant]
     Indication: INFECTION
     Route: 037
     Dates: start: 20090211, end: 20090213

REACTIONS (2)
  - Convulsion [Recovered/Resolved]
  - Local anaesthesia [Recovered/Resolved]
